FAERS Safety Report 18788900 (Version 1)
Quarter: 2021Q1

REPORT INFORMATION
  Report Type: Spontaneous
  Country: US (occurrence: US)
  Receive Date: 20210126
  Receipt Date: 20210126
  Transmission Date: 20210419
  Serious: Yes (Life-Threatening, Hospitalization, Other)
  Sender: FDA-Public Use
  Company Number: US-PFIZER INC-2021050368

PATIENT
  Age: 38 Year
  Sex: Female
  Weight: 63.5 kg

DRUGS (1)
  1. HEPARIN SODIUM. [Suspect]
     Active Substance: HEPARIN SODIUM
     Indication: DISSEMINATED INTRAVASCULAR COAGULATION
     Dosage: UNK
     Dates: start: 1994

REACTIONS (11)
  - Drug hypersensitivity [Unknown]
  - Nausea [Unknown]
  - Near death experience [Unknown]
  - Loss of consciousness [Unknown]
  - Acute respiratory distress syndrome [Unknown]
  - Pain in extremity [Unknown]
  - Neuropathy peripheral [Unknown]
  - Neutropenia [Unknown]
  - Multiple organ dysfunction syndrome [Unknown]
  - Dermatitis [Unknown]
  - Hypotension [Unknown]

NARRATIVE: CASE EVENT DATE: 1994
